FAERS Safety Report 17692594 (Version 1)
Quarter: 2020Q2

REPORT INFORMATION
  Report Type: Spontaneous
  Country: US (occurrence: US)
  Receive Date: 20200420
  Receipt Date: 20200420
  Transmission Date: 20200714
  Serious: Yes (Hospitalization)
  Sender: FDA-Public Use
  Company Number: None

PATIENT
  Age: 42 Year
  Sex: Female

DRUGS (6)
  1. MORPHINE [Concomitant]
     Active Substance: MORPHINE
  2. ONDANSETRON [Concomitant]
     Active Substance: ONDANSETRON
  3. ACETAMINOPHEN. [Concomitant]
     Active Substance: ACETAMINOPHEN
  4. OXYCODODONE [Concomitant]
  5. TEMOZOLOMIDE, 140MG, 20MG, 5MG, #21 OF EACH [Suspect]
     Active Substance: TEMOZOLOMIDE
     Indication: GASTROINTESTINAL STROMAL TUMOUR
     Dosage: ?          OTHER FREQUENCY:DAILY, 21 DAYS;?
     Route: 048
     Dates: start: 20200304, end: 20200414
  6. MEROPENEM (MERREM) [Concomitant]

REACTIONS (6)
  - Sepsis [None]
  - Acute kidney injury [None]
  - Skin mass [None]
  - Pyrexia [None]
  - Hyponatraemia [None]
  - Multiple organ dysfunction syndrome [None]

NARRATIVE: CASE EVENT DATE: 20200415
